FAERS Safety Report 11492915 (Version 1)
Quarter: 2015Q3

REPORT INFORMATION
  Report Type: Spontaneous
  Country: US (occurrence: US)
  Receive Date: 20150911
  Receipt Date: 20150911
  Transmission Date: 20151125
  Serious: No
  Sender: FDA-Public Use
  Company Number: US-ASTRAZENECA-2015SE84515

PATIENT

DRUGS (2)
  1. ZOFRAN [Concomitant]
     Active Substance: ONDANSETRON HYDROCHLORIDE
  2. LYNPARZA [Suspect]
     Active Substance: OLAPARIB
     Dosage: HALF DOSE FOR 2 DAYS THEN THREE QUARTER DOSE FOR A COUPLE OF DAYS THEN FULL 16 PILLS
     Route: 048
     Dates: start: 20150307

REACTIONS (2)
  - Fatigue [Unknown]
  - Intentional product misuse [Unknown]
